FAERS Safety Report 4263389-2 (Version None)
Quarter: 2004Q1

REPORT INFORMATION
  Report Type: 
  Country: None (occurrence: None)
  Receive Date: 20040104
  Receipt Date: 20040104
  Transmission Date: 20041129
  Serious: Yes (Life-Threatening, Hospitalization, Disabling)
  Sender: FDA-Public Use
  Company Number: None

PATIENT
  Age: 52 Year
  Sex: Male
  Weight: 76.2043 kg

DRUGS (4)
  1. ALLOPURINOL TAB [Suspect]
     Indication: ERYTHEMA MULTIFORME
     Dates: start: 20031119, end: 20031225
  2. ALLOPURINOL TAB [Suspect]
     Indication: HEPATIC FAILURE
     Dates: start: 20031119, end: 20031225
  3. ALLOPURINOL TAB [Suspect]
     Indication: PULMONARY TUBERCULOSIS
     Dates: start: 20031119, end: 20031225
  4. TUBERCULOSIS MEDICATIONS [Concomitant]

REACTIONS (10)
  - ALANINE AMINOTRANSFERASE INCREASED [None]
  - ASPARTATE AMINOTRANSFERASE INCREASED [None]
  - BIOPSY LIVER ABNORMAL [None]
  - BLOOD BILIRUBIN INCREASED [None]
  - BLOOD URIC ACID INCREASED [None]
  - BODY TEMPERATURE INCREASED [None]
  - DRUG INTERACTION [None]
  - ERYTHEMA MULTIFORME [None]
  - INTERNATIONAL NORMALISED RATIO INCREASED [None]
  - UROBILIN URINE [None]
